FAERS Safety Report 8624469-1 (Version None)
Quarter: 2012Q3

REPORT INFORMATION
  Report Type: 
  Country: None (occurrence: None)
  Receive Date: 20120827
  Receipt Date: 20120821
  Transmission Date: 20120928
  Serious: Yes (Death, Life-Threatening)
  Sender: FDA-Public Use
  Company Number: FR-ASTRAZENECA-2012SE60750

PATIENT
  Age: 22388 Day
  Sex: Female

DRUGS (13)
  1. ZOMETA [Suspect]
     Route: 042
     Dates: start: 20120719, end: 20120719
  2. NITROGLYCERIN [Suspect]
     Route: 062
     Dates: end: 20120726
  3. DURAGESIC-100 [Suspect]
     Route: 062
     Dates: end: 20120726
  4. CYMBALTA [Suspect]
     Route: 048
     Dates: end: 20120726
  5. BISOPROLOL FUMARATE [Suspect]
     Dosage: 2.5 MG IN THE MORNING AND 1.25 MG IN THE EVENING
     Route: 048
     Dates: end: 20120727
  6. LYRICA [Suspect]
     Route: 048
     Dates: end: 20120726
  7. PLAVIX [Suspect]
     Route: 048
  8. RAMIPRIL [Suspect]
     Route: 048
     Dates: end: 20120726
  9. ACETAMINOPHEN [Suspect]
     Route: 048
     Dates: end: 20120726
  10. ASPIRIN [Suspect]
     Route: 048
  11. NEXIUM [Suspect]
     Route: 048
  12. LERCANIDIPINE [Suspect]
     Route: 048
     Dates: end: 20120726
  13. ATORVASTATIN [Suspect]
     Route: 048

REACTIONS (4)
  - ACUTE PULMONARY OEDEMA [None]
  - RENAL FAILURE ACUTE [None]
  - AGITATION [None]
  - CONFUSIONAL STATE [None]
